FAERS Safety Report 8093028-4 (Version None)
Quarter: 2012Q1

REPORT INFORMATION
  Report Type: 
  Country: None (occurrence: None)
  Receive Date: 20120128
  Receipt Date: 20111025
  Transmission Date: 20120608
  Serious: No
  Sender: FDA-Public Use
  Company Number: US-ABBOTT-10P-163-0670938-00

PATIENT
  Sex: Male

DRUGS (5)
  1. LISINOPRIL [Concomitant]
     Indication: BLOOD PRESSURE
     Route: 048
  2. DARVOCET [Concomitant]
     Indication: PRODUCT USED FOR UNKNOWN INDICATION
     Dosage: 100/650MG AS NEEDED
     Route: 048
  3. CYCLOBENZAPRINE [Concomitant]
     Indication: MUSCLE RELAXANT THERAPY
  4. HUMIRA [Suspect]
     Indication: PSORIATIC ARTHROPATHY
     Dates: start: 20100801
  5. LYRICA [Concomitant]
     Indication: PAIN
     Route: 048

REACTIONS (14)
  - PAIN IN EXTREMITY [None]
  - BACK PAIN [None]
  - NASOPHARYNGITIS [None]
  - PSORIASIS [None]
  - HYPOAESTHESIA [None]
  - INJURY [None]
  - FALL [None]
  - ROTATOR CUFF SYNDROME [None]
  - JOINT DISLOCATION [None]
  - JOINT INSTABILITY [None]
  - PAIN [None]
  - MUSCULOSKELETAL PAIN [None]
  - FATIGUE [None]
  - PARAESTHESIA [None]
